FAERS Safety Report 24176434 (Version 2)
Quarter: 2025Q1

REPORT INFORMATION
  Report Type: Spontaneous
  Country: CA (occurrence: CA)
  Receive Date: 20240806
  Receipt Date: 20250203
  Transmission Date: 20250408
  Serious: Yes (Hospitalization, Other)
  Sender: AUROBINDO
  Company Number: CA-AUROBINDO-AUR-APL-2024-038119

PATIENT
  Age: 13 Year
  Sex: Female

DRUGS (11)
  1. AMLODIPINE [Suspect]
     Active Substance: AMLODIPINE BESYLATE
     Indication: Product used for unknown indication
     Dosage: 2500 MICROGRAM, ONCE A DAY
     Route: 065
  2. AMLODIPINE [Suspect]
     Active Substance: AMLODIPINE BESYLATE
     Indication: Product used for unknown indication
     Dosage: 7500 MICROGRAM, ONCE A DAY
     Route: 065
  3. AMLODIPINE [Suspect]
     Active Substance: AMLODIPINE BESYLATE
     Dosage: 5.0 MILLIGRAM, ONCE A DAY
     Route: 065
  4. SOMATROPIN [Suspect]
     Active Substance: SOMATROPIN
     Indication: Turner^s syndrome
     Dosage: 700 MICROGRAM, ONCE A DAY
     Route: 058
  5. SOMATROPIN [Suspect]
     Active Substance: SOMATROPIN
     Dosage: 1650 MICROGRAM, ONCE A DAY
     Route: 058
  6. SOMATROPIN [Suspect]
     Active Substance: SOMATROPIN
     Dosage: 600 MICROGRAM, ONCE A DAY
     Route: 058
  7. SOMATROPIN [Suspect]
     Active Substance: SOMATROPIN
     Dosage: 750 MICROGRAM, ONCE A DAY
     Route: 058
  8. SOMATROPIN [Suspect]
     Active Substance: SOMATROPIN
     Dosage: 800 MICROGRAM, ONCE A DAY
     Route: 058
  9. SOMATROPIN [Suspect]
     Active Substance: SOMATROPIN
     Dosage: 1500 MICROGRAM, ONCE A DAY
     Route: 058
  10. SOMATROPIN [Suspect]
     Active Substance: SOMATROPIN
     Dosage: 1200 MICROGRAM, ONCE A DAY
     Route: 058
  11. ASPIRIN [Concomitant]
     Active Substance: ASPIRIN
     Indication: Product used for unknown indication
     Route: 065

REACTIONS (5)
  - Arthralgia [Not Recovered/Not Resolved]
  - Coronary artery bypass [Not Recovered/Not Resolved]
  - Cardiac operation [Not Recovered/Not Resolved]
  - Knee deformity [Not Recovered/Not Resolved]
  - Pain in extremity [Not Recovered/Not Resolved]
